FAERS Safety Report 7690577-5 (Version None)
Quarter: 2011Q3

REPORT INFORMATION
  Report Type: 
  Country: None (occurrence: None)
  Receive Date: 20110818
  Receipt Date: 20110815
  Transmission Date: 20111222
  Serious: No
  Sender: FDA-Public Use
  Company Number: US-TEVA-291258USA

PATIENT
  Sex: Female
  Weight: 57.658 kg

DRUGS (6)
  1. AZILECT [Suspect]
     Indication: PARKINSON'S DISEASE
     Dosage: 1 MILLIGRAM; AT BEDTIME
     Route: 048
  2. ACETAMINOPHEN [Concomitant]
  3. LORATADINE [Concomitant]
  4. CITALOPRAM HYDROBROMIDE [Concomitant]
  5. CETIRIZINE HYDROCHLORIDE [Concomitant]
  6. SYSTANE [Concomitant]

REACTIONS (1)
  - DRUG INEFFECTIVE [None]
